FAERS Safety Report 17046560 (Version 1)
Quarter: 2019Q4

REPORT INFORMATION
  Report Type: Spontaneous
  Country: IT (occurrence: IT)
  Receive Date: 20191119
  Receipt Date: 20191119
  Transmission Date: 20200122
  Serious: Yes (Other)
  Sender: FDA-Public Use
  Company Number: IT-TEVA-2019-IT-1138268

PATIENT
  Age: 70 Year
  Sex: Female

DRUGS (5)
  1. BISOPROLOL FUMARATE. [Suspect]
     Active Substance: BISOPROLOL FUMARATE
     Indication: HYPERTENSION
     Dosage: 5 MILLIGRAM PER DAY
     Route: 048
     Dates: start: 20190511
  2. FUROSEMIDE. [Suspect]
     Active Substance: FUROSEMIDE
     Indication: HYPERTENSION
     Dosage: 25 MG PER DAY
     Route: 048
     Dates: start: 20190511
  3. PANTOPRAZOLE [Concomitant]
     Active Substance: PANTOPRAZOLE
  4. ALLOPURINOL. [Concomitant]
     Active Substance: ALLOPURINOL
  5. CANRENONE [Suspect]
     Active Substance: CANRENONE
     Indication: HYPERTENSION
     Dosage: 50 MG PER DAY
     Route: 048
     Dates: start: 20190511

REACTIONS (2)
  - Therapy non-responder [Recovering/Resolving]
  - Blood pressure increased [Recovering/Resolving]

NARRATIVE: CASE EVENT DATE: 20191001
